FAERS Safety Report 23331372 (Version 1)
Quarter: 2023Q4

REPORT INFORMATION
  Report Type: Spontaneous
  Country: US (occurrence: None)
  Receive Date: 20231221
  Receipt Date: 20231221
  Transmission Date: 20240109
  Serious: Yes (Death)
  Sender: FDA-Public Use
  Company Number: None

PATIENT
  Age: 56 Year
  Sex: Female
  Weight: 75.2 kg

DRUGS (6)
  1. MYCOPHENOLIC ACID [Suspect]
     Active Substance: MYCOPHENOLIC ACID
     Indication: Renal transplant
     Dosage: 720 MG TWICE A DAY ORAL?
     Route: 048
     Dates: start: 20230323, end: 20231216
  2. SIROLIMUS [Suspect]
     Active Substance: SIROLIMUS
     Indication: Renal transplant
     Dosage: 3 MG DAILY ORAL?
     Route: 048
     Dates: start: 20231126, end: 20231216
  3. FAMOTIDINE [Concomitant]
     Active Substance: FAMOTIDINE
     Dates: start: 20230308, end: 20231216
  4. ROSUVASTATIN [Concomitant]
     Active Substance: ROSUVASTATIN
     Dates: start: 20230101, end: 20231216
  5. hydralazine 25mg tablets [Concomitant]
     Dates: start: 20230613, end: 20231216
  6. sodium bicarb 650mg tablets [Concomitant]
     Dates: start: 20230311, end: 20231216

REACTIONS (2)
  - Metastatic gastric cancer [None]
  - Metastases to liver [None]

NARRATIVE: CASE EVENT DATE: 20231216
